FAERS Safety Report 19851709 (Version 1)
Quarter: 2021Q3

REPORT INFORMATION
  Report Type: Spontaneous
  Country: ES (occurrence: ES)
  Receive Date: 20210917
  Receipt Date: 20210917
  Transmission Date: 20211014
  Serious: Yes (Other)
  Sender: FDA-Public Use
  Company Number: ES-ROCHE-2911015

PATIENT
  Age: 41 Year
  Sex: Female
  Weight: 54 kg

DRUGS (3)
  1. COMIRNATY [Suspect]
     Active Substance: TOZINAMERAN
     Indication: COVID-19 IMMUNISATION
     Dosage: 1 DOSE ADMINISTERED ? ADMINISTRATION SITE: LEFT ARM
     Route: 030
     Dates: start: 20210706, end: 20210706
  2. COMIRNATY [Suspect]
     Active Substance: TOZINAMERAN
     Route: 030
     Dates: start: 20210727, end: 20210727
  3. OCREVUS [Suspect]
     Active Substance: OCRELIZUMAB
     Indication: RELAPSING-REMITTING MULTIPLE SCLEROSIS
     Route: 041
     Dates: start: 20201008

REACTIONS (1)
  - Herpes zoster oticus [Recovering/Resolving]

NARRATIVE: CASE EVENT DATE: 20210818
